FAERS Safety Report 9825669 (Version 1)
Quarter: 2014Q1

REPORT INFORMATION
  Report Type: Spontaneous
  Country: DE (occurrence: DE)
  Receive Date: 20140117
  Receipt Date: 20140117
  Transmission Date: 20141002
  Serious: Yes (Congenital Anomaly, Other)
  Sender: FDA-Public Use
  Company Number: DE-ELI_LILLY_AND_COMPANY-DE201401002420

PATIENT
  Age: 0 Day
  Sex: Female

DRUGS (4)
  1. FLUOXETINE HYDROCHLORIDE [Suspect]
     Indication: DEPRESSION
     Dosage: 20 MG, QD
     Route: 064
  2. FLUOXETINE HYDROCHLORIDE [Suspect]
     Indication: DEPRESSION
     Dosage: 20 MG, QD
     Route: 064
  3. CEFUROXIME [Concomitant]
     Indication: PREMATURE RUPTURE OF MEMBRANES
     Dosage: 1 DF, UNKNOWN
     Route: 064
  4. CEFUROXIME [Concomitant]
     Indication: PREMATURE RUPTURE OF MEMBRANES
     Dosage: 1 DF, UNKNOWN
     Route: 064

REACTIONS (5)
  - Intraventricular haemorrhage neonatal [Unknown]
  - Atrial septal defect [Not Recovered/Not Resolved]
  - Ventricular septal defect [Not Recovered/Not Resolved]
  - Premature baby [Recovered/Resolved]
  - Foetal exposure during pregnancy [Unknown]
